FAERS Safety Report 9036374 (Version 1)
Quarter: 2013Q1

REPORT INFORMATION
  Report Type: Report from Study
  Country: US (occurrence: US)
  Receive Date: 20130129
  Receipt Date: 20130129
  Transmission Date: 20140127
  Serious: No
  Sender: FDA-Public Use
  Company Number: US-ABBOTT-12P-163-0890529-00

PATIENT
  Age: 50 Year
  Sex: Female

DRUGS (10)
  1. HUMIRA 40 MG/0.8 ML PEN [Suspect]
     Indication: CROHN^S DISEASE
     Dosage: 160 MG LOADING DOSE
     Dates: start: 20111107, end: 20111107
  2. HUMIRA 40 MG/0.8 ML PEN [Suspect]
     Dosage: 80 MG LOADING DOSE
     Dates: start: 20111122, end: 20111122
  3. HUMIRA 40 MG/0.8 ML PEN [Suspect]
     Dates: start: 20111206
  4. LEXAPRO [Concomitant]
     Indication: DEPRESSION
  5. LYRICA [Concomitant]
     Indication: FIBROMYALGIA
  6. ZOLPIDEM [Concomitant]
     Indication: INSOMNIA
     Dosage: AT NIGHT
  7. TRAMADOL [Concomitant]
     Indication: ABDOMINAL PAIN UPPER
  8. TRAZODONE [Concomitant]
     Indication: PRODUCT USED FOR UNKNOWN INDICATION
     Dosage: AT NIGHT
  9. XANAX [Concomitant]
     Indication: PRODUCT USED FOR UNKNOWN INDICATION
  10. CHLORAL HYDRATE [Concomitant]
     Indication: INSOMNIA
     Dosage: AT NIGHT
     Route: 048

REACTIONS (4)
  - Incorrect dose administered [Not Recovered/Not Resolved]
  - Crohn^s disease [Not Recovered/Not Resolved]
  - Muscle strain [Not Recovered/Not Resolved]
  - Musculoskeletal pain [Not Recovered/Not Resolved]
